FAERS Safety Report 6149253-2 (Version None)
Quarter: 2009Q2

REPORT INFORMATION
  Report Type: 
  Country: None (occurrence: None)
  Receive Date: 20090409
  Receipt Date: 20060717
  Transmission Date: 20091009
  Serious: Yes (Other)
  Sender: FDA-Public Use
  Company Number: GB-CELGENEUS-163-20785-06080100

PATIENT
  Age: 76 Year
  Sex: Female

DRUGS (2)
  1. THALOMID [Suspect]
     Indication: MULTIPLE MYELOMA
     Route: 048
  2. DEXAMETHASONE 1.5MG TAB [Concomitant]
     Indication: MULTIPLE MYELOMA
     Route: 048

REACTIONS (1)
  - HEPATOTOXICITY [None]
